FAERS Safety Report 18272473 (Version 1)
Quarter: 2020Q3

REPORT INFORMATION
  Report Type: Spontaneous
  Country: DE (occurrence: DE)
  Receive Date: 20200916
  Receipt Date: 20200916
  Transmission Date: 20201103
  Serious: Yes (Hospitalization)
  Sender: FDA-Public Use
  Company Number: DE-ACCORD-201149

PATIENT
  Age: 89 Year
  Sex: Female
  Weight: 62.2 kg

DRUGS (10)
  1. FOLIC ACID. [Concomitant]
     Active Substance: FOLIC ACID
     Dosage: 5 MG, 1?0?0?0, TABLETS
     Route: 048
  2. MEMANTINE/MEMANTINE HYDROCHLORIDE [Concomitant]
     Active Substance: MEMANTINE HYDROCHLORIDE
     Dosage: 10 MG, 0?1?0?0, TABLETS
     Route: 048
  3. QUETIAPINE. [Suspect]
     Active Substance: QUETIAPINE
     Indication: PRODUCT USED FOR UNKNOWN INDICATION
     Dosage: 150 MG, 0?1?1?0
     Route: 048
  4. CYANOCOBALAMIN/CYANOCOBALAMIN ZINC TANNATE/CYANOCOBALAMIN?TANNIN COMPLEX [Concomitant]
     Active Substance: CYANOCOBALAMIN
     Dosage: 1 MG, 1?0?0?0, TABLETS
     Route: 048
  5. IRON [Concomitant]
     Active Substance: IRON
     Dosage: 100 MG, 1?0?1?0, CAPSULES
     Route: 048
  6. CELECOXIB. [Concomitant]
     Active Substance: CELECOXIB
     Dosage: 200 MG, 0?0?1?0, CAPSULES
     Route: 048
  7. PARACETAMOL [Concomitant]
     Active Substance: ACETAMINOPHEN
     Dosage: 500 MG, 1?1?1?0, TABLETS
     Route: 048
  8. MIRTAZAPINE. [Suspect]
     Active Substance: MIRTAZAPINE
     Indication: PRODUCT USED FOR UNKNOWN INDICATION
     Dosage: 15 MG, 0?0?1?0, TABLETS
     Route: 048
  9. THIAMINE. [Concomitant]
     Active Substance: THIAMINE
     Dosage: 200 MG, 0.5?0.5?0.5?0, TABLETS
     Route: 048
  10. QUETIAPINE. [Suspect]
     Active Substance: QUETIAPINE
     Indication: PRODUCT USED FOR UNKNOWN INDICATION
     Dosage: 50 MG, 2?0?0?0, PROLONGED?RELEASE TABLET
     Route: 048

REACTIONS (2)
  - Delirium [Unknown]
  - Aggression [Unknown]

NARRATIVE: CASE EVENT DATE: 201909
